FAERS Safety Report 25243445 (Version 1)
Quarter: 2025Q2

REPORT INFORMATION
  Report Type: Spontaneous
  Country: US (occurrence: US)
  Receive Date: 20250428
  Receipt Date: 20250428
  Transmission Date: 20250716
  Serious: Yes (Hospitalization, Other)
  Sender: ALEMBIC
  Company Number: US-ALEMBIC PHARMACUETICALS LIMITED-2025SCAL000385

PATIENT

DRUGS (3)
  1. METRONIDAZOLE [Suspect]
     Active Substance: METRONIDAZOLE
     Indication: Cyst
     Route: 065
  2. CEFAZOLIN [Concomitant]
     Active Substance: CEFAZOLIN
     Indication: Cyst
     Route: 065
  3. FLUCONAZOLE [Concomitant]
     Active Substance: FLUCONAZOLE
     Indication: Cyst
     Route: 065

REACTIONS (15)
  - Drug-induced liver injury [Unknown]
  - Lethargy [Unknown]
  - Jaundice [Unknown]
  - Aspartate aminotransferase increased [Recovered/Resolved]
  - Alanine aminotransferase increased [Recovered/Resolved]
  - Blood alkaline phosphatase increased [Recovered/Resolved]
  - Blood bilirubin increased [Recovered/Resolved]
  - International normalised ratio increased [Unknown]
  - Hepatitis cholestatic [Unknown]
  - Hepatic necrosis [Unknown]
  - Hepatic enzyme abnormal [Recovered/Resolved]
  - Chronic hepatitis [Unknown]
  - Hepatic steatosis [Unknown]
  - Cholecystitis [Unknown]
  - Idiosyncratic drug reaction [Unknown]
